FAERS Safety Report 4674040-1 (Version None)
Quarter: 2005Q2

REPORT INFORMATION
  Report Type: 
  Country: None (occurrence: None)
  Receive Date: 20050525
  Receipt Date: 20050510
  Transmission Date: 20051028
  Serious: Yes (Hospitalization)
  Sender: FDA-Public Use
  Company Number: JP_050506539

PATIENT
  Age: 42 Year
  Sex: Male

DRUGS (7)
  1. VINBLASTINE SULFATE [Suspect]
     Indication: TESTIS CANCER
  2. CISPLATIN [Concomitant]
  3. CYCLOPHOSPHAMIDE [Concomitant]
  4. DACTINOMYCIN [Concomitant]
  5. BLEOMYCIN [Concomitant]
  6. ETOPOSIDE [Concomitant]
  7. METHOTREXATE [Concomitant]

REACTIONS (6)
  - POST PROCEDURAL COMPLICATION [None]
  - RECURRENT CANCER [None]
  - RENAL ARTERY STENOSIS [None]
  - RENAL ATROPHY [None]
  - RENAL CELL CARCINOMA STAGE UNSPECIFIED [None]
  - TESTIS CANCER [None]
